FAERS Safety Report 5755146-2 (Version None)
Quarter: 2008Q2

REPORT INFORMATION
  Report Type: 
  Country: None (occurrence: None)
  Receive Date: 20080602
  Receipt Date: 20080526
  Transmission Date: 20081010
  Serious: Yes (Hospitalization)
  Sender: FDA-Public Use
  Company Number: FR-JNJFOC-20080505037

PATIENT
  Sex: Female

DRUGS (7)
  1. RISPERDAL [Suspect]
     Indication: DRUG USE FOR UNKNOWN INDICATION
     Dosage: 0-0-1
     Route: 048
  2. DITROPAN [Suspect]
     Indication: DRUG USE FOR UNKNOWN INDICATION
     Route: 048
  3. EQUANIL [Suspect]
     Indication: DRUG USE FOR UNKNOWN INDICATION
     Route: 048
  4. MEMANTINE HCL [Concomitant]
  5. PRAXILENE [Concomitant]
  6. MICARDIS HCT [Concomitant]
  7. TRANSIPEG [Concomitant]

REACTIONS (4)
  - CONSTIPATION [None]
  - HYPOTHERMIA [None]
  - LOCKED-IN SYNDROME [None]
  - URINARY RETENTION [None]
